FAERS Safety Report 5472376-8 (Version None)
Quarter: 2007Q3

REPORT INFORMATION
  Report Type: 
  Country: None (occurrence: None)
  Receive Date: 20070927
  Receipt Date: 20070918
  Transmission Date: 20080115
  Serious: Yes (Other)
  Sender: FDA-Public Use
  Company Number: 2007SP017278

PATIENT
  Age: 65 Year
  Sex: Male
  Weight: 72.5755 kg

DRUGS (3)
  1. PEG-INTRON [Suspect]
     Indication: HEPATITIS C
     Dosage: SC
     Route: 058
     Dates: start: 20070808, end: 20070822
  2. RIBAVIRIN [Suspect]
     Indication: HEPATITIS C
     Dosage: PO
     Route: 048
     Dates: start: 20070808, end: 20070822
  3. AMBIEN [Suspect]

REACTIONS (32)
  - ANXIETY [None]
  - BALANCE DISORDER [None]
  - BLOOD PRESSURE SYSTOLIC INCREASED [None]
  - CERUMEN IMPACTION [None]
  - CHILLS [None]
  - CONFUSIONAL STATE [None]
  - CONSTIPATION [None]
  - DEAFNESS UNILATERAL [None]
  - DEPRESSED MOOD [None]
  - DISTURBANCE IN ATTENTION [None]
  - DYSGEUSIA [None]
  - EAR DISORDER [None]
  - EAR INFECTION [None]
  - EAR NEOPLASM [None]
  - EAR PAIN [None]
  - ECONOMIC PROBLEM [None]
  - FALL [None]
  - FEAR [None]
  - FEELING HOT [None]
  - GAIT DEVIATION [None]
  - GAIT DISTURBANCE [None]
  - INADEQUATE DIET [None]
  - INSOMNIA [None]
  - MOBILITY DECREASED [None]
  - NAUSEA [None]
  - OTITIS EXTERNA [None]
  - PAROSMIA [None]
  - STRESS [None]
  - SWELLING FACE [None]
  - TINNITUS [None]
  - VERTIGO [None]
  - WEIGHT DECREASED [None]
